FAERS Safety Report 5831166-4 (Version None)
Quarter: 2008Q3

REPORT INFORMATION
  Report Type: 
  Country: None (occurrence: None)
  Receive Date: 20080801
  Receipt Date: 20080507
  Transmission Date: 20090109
  Serious: No
  Sender: FDA-Public Use
  Company Number: US-BRISTOL-MYERS SQUIBB COMPANY-14182166

PATIENT
  Age: 87 Year
  Sex: Female

DRUGS (1)
  1. COUMADIN [Suspect]
     Indication: CARDIAC PACEMAKER INSERTION
     Dosage: INITIALLY 2.5MG/DAY. FROM APR08 2.5 MG MON,WED,FRI,SUN, WITH 5MG ALTERNATING DAYS.

REACTIONS (1)
  - EPISTAXIS [None]
